FAERS Safety Report 20219283 (Version 1)
Quarter: 2021Q4

REPORT INFORMATION
  Report Type: Spontaneous
  Country: BR (occurrence: BR)
  Receive Date: 20211222
  Receipt Date: 20211222
  Transmission Date: 20220303
  Serious: Yes (Other)
  Sender: FDA-Public Use
  Company Number: BR-AMERICAN REGENT INC-2021003346

PATIENT

DRUGS (1)
  1. VENOFER [Suspect]
     Active Substance: IRON SUCROSE
     Indication: Serum ferritin decreased
     Dosage: 100 MILLIGRAM, 1 IN 3 M
     Route: 042

REACTIONS (3)
  - Metabolic surgery [Unknown]
  - Product dose omission issue [Unknown]
  - Product availability issue [Unknown]
